FAERS Safety Report 7229498-0 (Version None)
Quarter: 2011Q1

REPORT INFORMATION
  Report Type: 
  Country: None (occurrence: None)
  Receive Date: 20110117
  Receipt Date: 20100326
  Transmission Date: 20110831
  Serious: No
  Sender: FDA-Public Use
  Company Number: US-TYCO HEALTHCARE/MALLINCKRODT-T201001007

PATIENT

DRUGS (1)
  1. OPTIRAY 350 [Suspect]
     Dosage: 95 ML, SINGLE
     Route: 042

REACTIONS (2)
  - THROAT IRRITATION [None]
  - ERYTHEMA [None]
